FAERS Safety Report 4386976-X (Version None)
Quarter: 2004Q2

REPORT INFORMATION
  Report Type: 
  Country: None (occurrence: None)
  Receive Date: 20040625
  Receipt Date: 20040614
  Transmission Date: 20050107
  Serious: Yes (Hospitalization)
  Sender: FDA-Public Use
  Company Number: RS004538-J

PATIENT
  Age: 48 Year
  Sex: Female

DRUGS (11)
  1. RABEPRAZOLE SODIUM [Suspect]
     Indication: SCLERODERMA
     Dosage: 10 MG, 1 IN 1 D, ORAL
     Route: 048
     Dates: end: 20040610
  2. ALFAROL (ALFACALCIDOL) [Suspect]
     Indication: OSTEOPOROSIS
     Dosage: ORAL
     Route: 048
  3. DIAMOX [Suspect]
     Indication: GLAUCOMA
  4. VITAMEDIN (VITAMEDIN CAPSULE) [Suspect]
  5. LASIX [Suspect]
     Indication: OEDEMA
  6. RHEUMATREX [Suspect]
     Indication: RHEUMATOID ARTHRITIS
     Dosage: ORAL
     Route: 048
  7. FOLIC ACID [Suspect]
     Indication: RHEUMATOID ARTHRITIS
  8. BENET (RISEDRONATE SODIUM) [Concomitant]
  9. REMICADE (INFLIXIMAB) [Concomitant]
  10. ISONIAZID [Concomitant]
  11. CALCIUM GLUCONATE AND PREPARATIONS [Concomitant]

REACTIONS (2)
  - EOSINOPHIL COUNT INCREASED [None]
  - EXANTHEM [None]
